FAERS Safety Report 21772332 (Version 1)
Quarter: 2022Q4

REPORT INFORMATION
  Report Type: Report from Study
  Country: US (occurrence: US)
  Receive Date: 20221223
  Receipt Date: 20221223
  Transmission Date: 20230113
  Serious: Yes (Other)
  Sender: FDA-Public Use
  Company Number: US-TAKEDA-2022TUS059287

PATIENT
  Age: 47 Year
  Sex: Male

DRUGS (4)
  1. TEDUGLUTIDE [Suspect]
     Active Substance: TEDUGLUTIDE
     Indication: Short-bowel syndrome
     Dosage: 5.4 MILLIGRAM, QD
     Route: 058
     Dates: start: 20220401
  2. TEDUGLUTIDE [Suspect]
     Active Substance: TEDUGLUTIDE
     Indication: Short-bowel syndrome
     Dosage: 5.4 MILLIGRAM, QD
     Route: 058
     Dates: start: 20220401
  3. TEDUGLUTIDE [Suspect]
     Active Substance: TEDUGLUTIDE
     Indication: Short-bowel syndrome
     Dosage: 5.4 MILLIGRAM, QD
     Route: 058
     Dates: start: 20220401
  4. TEDUGLUTIDE [Suspect]
     Active Substance: TEDUGLUTIDE
     Indication: Short-bowel syndrome
     Dosage: 5.4 MILLIGRAM, QD
     Route: 058
     Dates: start: 20220401

REACTIONS (3)
  - Nephrolithiasis [Recovering/Resolving]
  - Injection site haemorrhage [Unknown]
  - Urticaria [Unknown]

NARRATIVE: CASE EVENT DATE: 20221001
